FAERS Safety Report 14073296 (Version 1)
Quarter: 2017Q4

REPORT INFORMATION
  Report Type: Spontaneous
  Country: US (occurrence: US)
  Receive Date: 20171010
  Receipt Date: 20171010
  Transmission Date: 20180321
  Serious: No
  Sender: FDA-Public Use
  Company Number: US-JNJFOC-20170806750

PATIENT
  Age: 16 Month
  Sex: Male

DRUGS (2)
  1. INFANTS TYLENOL [Suspect]
     Active Substance: ACETAMINOPHEN
     Indication: PYREXIA
     Dosage: AS NEEDED FOR PAIN
     Route: 048
  2. INFANTS TYLENOL [Suspect]
     Active Substance: ACETAMINOPHEN
     Indication: TEETHING
     Dosage: AS NEEDED FOR PAIN
     Route: 048

REACTIONS (3)
  - Feeling abnormal [Unknown]
  - Respiratory rate increased [Unknown]
  - Product quality issue [Unknown]
